FAERS Safety Report 25626604 (Version 1)
Quarter: 2025Q3

REPORT INFORMATION
  Report Type: Report from Study
  Country: US (occurrence: US)
  Receive Date: 20250731
  Receipt Date: 20250731
  Transmission Date: 20251020
  Serious: No
  Sender: SUNOVION
  Company Number: US-SMPA-2025SPA009326AA

PATIENT

DRUGS (13)
  1. ORGOVYX [Suspect]
     Active Substance: RELUGOLIX
     Indication: Prostate cancer
     Route: 048
     Dates: start: 20250716
  2. ORGOVYX [Suspect]
     Active Substance: RELUGOLIX
     Route: 048
     Dates: start: 20250717
  3. CLARITIN [Concomitant]
     Active Substance: LORATADINE
     Route: 065
  4. EZETIMIBE [Concomitant]
     Active Substance: EZETIMIBE
     Route: 065
  5. FAMOTIDINE [Concomitant]
     Active Substance: FAMOTIDINE
     Route: 065
  6. Isorel [Concomitant]
     Route: 065
  7. ARGININE [Concomitant]
     Active Substance: ARGININE
     Route: 065
  8. MAGNESIUM OXIDE [Concomitant]
     Active Substance: MAGNESIUM OXIDE
     Route: 065
  9. DIETARY SUPPLEMENT [Concomitant]
     Active Substance: DIETARY SUPPLEMENT
     Route: 065
  10. MINERALS [Concomitant]
     Active Substance: MINERALS
     Route: 065
  11. Turmeric complex [Concomitant]
     Route: 065
  12. ROSUVASTATIN [Concomitant]
     Active Substance: ROSUVASTATIN
     Route: 065
  13. TADALAFIL [Concomitant]
     Active Substance: TADALAFIL
     Route: 065

REACTIONS (1)
  - Abdominal discomfort [Unknown]
